FAERS Safety Report 7445574-1 (Version None)
Quarter: 2011Q2

REPORT INFORMATION
  Report Type: 
  Country: None (occurrence: None)
  Receive Date: 20110429
  Receipt Date: 20110420
  Transmission Date: 20111010
  Serious: Yes (Hospitalization)
  Sender: FDA-Public Use
  Company Number: IT-TEVA-278541ISR

PATIENT
  Sex: Female

DRUGS (2)
  1. FERRIC HYDROXIDE POLYMALTOSE COMPLEX [Concomitant]
     Indication: ANAEMIA
     Dates: start: 20110308, end: 20110308
  2. ATENOLOL [Suspect]
     Indication: TACHYCARDIA
     Dosage: 25 MILLIGRAM; 25MG
     Dates: start: 20101201, end: 20110305

REACTIONS (1)
  - EXTRASYSTOLES [None]
